FAERS Safety Report 7325459-1 (Version None)
Quarter: 2011Q1

REPORT INFORMATION
  Report Type: 
  Country: None (occurrence: None)
  Receive Date: 20110302
  Receipt Date: 20100908
  Transmission Date: 20110831
  Serious: Yes (Other)
  Sender: FDA-Public Use
  Company Number: US-BAYER-201019731NA

PATIENT
  Sex: Female

DRUGS (5)
  1. ORTHO EVRA [Concomitant]
     Dosage: UNK
     Dates: start: 20080801, end: 20090201
  2. YASMIN [Suspect]
     Indication: PRODUCT USED FOR UNKNOWN INDICATION
     Dosage: UNK
     Route: 048
     Dates: start: 20070101, end: 20080101
  3. PREVACID [Concomitant]
  4. YAZ [Suspect]
     Indication: PRODUCT USED FOR UNKNOWN INDICATION
     Dosage: UNK
     Route: 048
     Dates: start: 20070101, end: 20080101
  5. TOPAMAX [Concomitant]

REACTIONS (7)
  - CHOLECYSTITIS [None]
  - CHOLECYSTITIS CHRONIC [None]
  - ABDOMINAL PAIN UPPER [None]
  - NAUSEA [None]
  - VOMITING [None]
  - DIARRHOEA [None]
  - BILIARY DYSKINESIA [None]
